FAERS Safety Report 5257638-1 (Version None)
Quarter: 2007Q1

REPORT INFORMATION
  Report Type: 
  Country: None (occurrence: None)
  Receive Date: 20070307
  Receipt Date: 20070223
  Transmission Date: 20070707
  Serious: Yes (Hospitalization)
  Sender: FDA-Public Use
  Company Number: PHBS2007JP01869

PATIENT
  Age: 78 Year
  Sex: Female
  Weight: 40 kg

DRUGS (4)
  1. DIOVAN [Suspect]
     Indication: HYPERTENSION
     Dosage: 80 MG, BID
     Route: 048
     Dates: start: 20060920, end: 20061004
  2. FERROMIA [Concomitant]
     Indication: ANAEMIA
     Dosage: 50 MG, UNK
     Route: 048
     Dates: start: 20030930
  3. CEREKINON [Concomitant]
     Indication: GASTRITIS
     Dosage: 200 MG, UNK
     Route: 048
     Dates: start: 20020610
  4. ALLOPURINOL [Concomitant]
     Indication: HYPERURICAEMIA
     Dosage: 100 MG, UNK
     Route: 048
     Dates: start: 20031216, end: 20061031

REACTIONS (9)
  - ANOREXIA [None]
  - BLOOD CHLORIDE DECREASED [None]
  - BLOOD SODIUM DECREASED [None]
  - BLOOD UREA INCREASED [None]
  - HAEMOGLOBIN DECREASED [None]
  - HYPOALDOSTERONISM [None]
  - HYPOCHLORAEMIA [None]
  - HYPONATRAEMIA [None]
  - MALAISE [None]
